FAERS Safety Report 21548341 (Version 2)
Quarter: 2022Q4

REPORT INFORMATION
  Report Type: Spontaneous
  Country: US (occurrence: US)
  Receive Date: 20221103
  Receipt Date: 20221119
  Transmission Date: 20230112
  Serious: Yes (Death, Life-Threatening, Hospitalization)
  Sender: FDA-Public Use
  Company Number: US-TEVA-2022-US-2821431

PATIENT
  Age: 22 Year
  Sex: Male

DRUGS (7)
  1. FENTANYL [Suspect]
     Active Substance: FENTANYL
     Indication: Intentional overdose
     Route: 065
  2. FENTANYL [Suspect]
     Active Substance: FENTANYL
     Indication: Suicidal ideation
  3. LEVETIRACETAM [Suspect]
     Active Substance: LEVETIRACETAM
     Indication: Encephalitis
     Route: 065
  4. MANNITOL [Suspect]
     Active Substance: MANNITOL
     Indication: Encephalitis
     Route: 065
  5. NALOXONE [Suspect]
     Active Substance: NALOXONE
     Indication: Encephalitis
     Dosage: 4 MG
     Route: 042
  6. ETOMIDATE [Concomitant]
     Active Substance: ETOMIDATE
     Indication: Product used for unknown indication
  7. DIAZEPAM [Concomitant]
     Active Substance: DIAZEPAM
     Indication: Sedation

REACTIONS (5)
  - Intentional overdose [Fatal]
  - Completed suicide [Fatal]
  - Encephalitis [Fatal]
  - Coma [Fatal]
  - Drug ineffective [Unknown]
